FAERS Safety Report 4501533-X (Version None)
Quarter: 2004Q4

REPORT INFORMATION
  Report Type: 
  Country: None (occurrence: None)
  Receive Date: 20041115
  Receipt Date: 20041109
  Transmission Date: 20050328
  Serious: Yes (Life-Threatening, Hospitalization)
  Sender: FDA-Public Use
  Company Number: US-MERCK-0411USA01647

PATIENT
  Age: 53 Year
  Sex: Male

DRUGS (6)
  1. VIOXX [Suspect]
     Indication: INTERVERTEBRAL DISC PROTRUSION
     Route: 048
     Dates: end: 20041019
  2. NORVASC [Concomitant]
     Route: 065
  3. [THERAPY UNSPECIFIED] [Concomitant]
     Route: 065
  4. VITAMIN E [Concomitant]
     Route: 065
  5. ASCORBIC ACID [Concomitant]
     Route: 065
  6. VITAMIN B COMPLEX [Concomitant]
     Route: 065

REACTIONS (4)
  - DEHYDRATION [None]
  - DIZZINESS [None]
  - OEDEMA PERIPHERAL [None]
  - PARAESTHESIA [None]
